FAERS Safety Report 21147021 (Version 13)
Quarter: 2022Q4

REPORT INFORMATION
  Report Type: Report from Study
  Country: FR (occurrence: None)
  Receive Date: 20220729
  Receipt Date: 20221213
  Transmission Date: 20230112
  Serious: Yes (Hospitalization)
  Sender: FDA-Public Use
  Company Number: FR-Eisai Medical Research-EC-2022-120059

PATIENT
  Age: 64 Year
  Sex: Male
  Weight: 79 kg

DRUGS (10)
  1. LENVATINIB [Suspect]
     Active Substance: LENVATINIB
     Indication: Squamous cell carcinoma of head and neck
     Dosage: STARTING DOSE AT 24 MG, FLUCTUATED DOSAGE
     Route: 048
     Dates: start: 20220127, end: 20220331
  2. LENVATINIB [Suspect]
     Active Substance: LENVATINIB
     Dosage: STARTING DOSE AT 20 MG, FLUCTUATED DOSAGE
     Route: 048
     Dates: start: 20220407, end: 20221019
  3. LENVATINIB [Suspect]
     Active Substance: LENVATINIB
     Route: 048
     Dates: start: 20221122
  4. KARDEGIC [Concomitant]
     Active Substance: ASPIRIN DL-LYSINE
     Dates: start: 201101
  5. IVABRADINE [Concomitant]
     Active Substance: IVABRADINE
     Dates: start: 201101
  6. ACETAMINOPHEN\OPIUM [Concomitant]
     Active Substance: ACETAMINOPHEN\OPIUM
     Dates: start: 20220208
  7. LEVOTHYROXINE [Concomitant]
     Active Substance: LEVOTHYROXINE
     Dates: start: 20220311, end: 20220728
  8. PANTOPRAZOLE [Concomitant]
     Active Substance: PANTOPRAZOLE
     Dates: start: 20220310
  9. MAGNESIUM PIDOLATE [Concomitant]
     Active Substance: MAGNESIUM PIDOLATE
     Dates: start: 20220310
  10. SODIUM ALGINATE\SODIUM BICARBONATE [Concomitant]
     Active Substance: SODIUM ALGINATE\SODIUM BICARBONATE
     Dates: start: 20220310, end: 20220331

REACTIONS (1)
  - Dysphagia [Recovering/Resolving]

NARRATIVE: CASE EVENT DATE: 20220322
